FAERS Safety Report 21626606 (Version 1)
Quarter: 2022Q4

REPORT INFORMATION
  Report Type: Spontaneous
  Country: US (occurrence: None)
  Receive Date: 20221122
  Receipt Date: 20221122
  Transmission Date: 20230113
  Serious: Yes (Hospitalization)
  Sender: FDA-Public Use
  Company Number: US-ROCHE-3222792

PATIENT
  Sex: Female

DRUGS (2)
  1. ACTEMRA [Suspect]
     Active Substance: TOCILIZUMAB
     Indication: Rheumatoid arthritis
     Dosage: STRENGTH 162MG/0.9M
     Route: 058
     Dates: start: 202109
  2. ACTEMRA [Suspect]
     Active Substance: TOCILIZUMAB

REACTIONS (4)
  - Femur fracture [Unknown]
  - Visual impairment [Unknown]
  - Product quality issue [Unknown]
  - Product dose omission issue [Unknown]

NARRATIVE: CASE EVENT DATE: 20221101
